FAERS Safety Report 8126439-9 (Version None)
Quarter: 2012Q1

REPORT INFORMATION
  Report Type: 
  Country: None (occurrence: None)
  Receive Date: 20120209
  Receipt Date: 20120207
  Transmission Date: 20120608
  Serious: No
  Sender: FDA-Public Use
  Company Number: US-PFIZER INC-2012035039

PATIENT
  Sex: Male
  Weight: 77.098 kg

DRUGS (5)
  1. GABAPENTIN [Concomitant]
     Dosage: 100 MG, 2X/DAY
  2. LORAZEPAM [Concomitant]
     Dosage: 1 MG, EVERY SIX HOURS
  3. CHANTIX [Suspect]
     Dosage: UNK
  4. CHANTIX [Suspect]
     Indication: SMOKING CESSATION THERAPY
     Dosage: 0.5 MG, DAILY
     Dates: start: 20110101
  5. TRAMADOL [Concomitant]
     Dosage: 50 MG, EVERY SIX HOURS

REACTIONS (1)
  - ABNORMAL DREAMS [None]
